FAERS Safety Report 9734232 (Version 2)
Quarter: 2014Q2

REPORT INFORMATION
  Report Type: Spontaneous
  Country: KR (occurrence: KR)
  Receive Date: 20131205
  Receipt Date: 20140408
  Transmission Date: 20141212
  Serious: Yes (Other)
  Sender: FDA-Public Use
  Company Number: KR-GILEAD-2013-0089230

PATIENT
  Age: 76 Year
  Sex: Male

DRUGS (1)
  1. HEPSERA [Suspect]
     Indication: CHRONIC HEPATITIS B
     Dosage: UNK
     Route: 065
     Dates: start: 200503, end: 201302

REACTIONS (3)
  - Hepatocellular carcinoma [Unknown]
  - Drug ineffective [Unknown]
  - Drug resistance [Unknown]
